FAERS Safety Report 25619941 (Version 1)
Quarter: 2025Q3

REPORT INFORMATION
  Report Type: Spontaneous
  Country: CN (occurrence: CN)
  Receive Date: 20250730
  Receipt Date: 20250730
  Transmission Date: 20251020
  Serious: Yes (Other)
  Sender: JOHNSON AND JOHNSON
  Company Number: CN-JNJFOC-20250728528

PATIENT
  Age: 76 Year
  Sex: Male
  Weight: 70 kg

DRUGS (2)
  1. ERLEADA [Suspect]
     Active Substance: APALUTAMIDE
     Indication: Bladder cancer
     Route: 048
     Dates: start: 20250603, end: 20250706
  2. DENOSUMAB [Suspect]
     Active Substance: DENOSUMAB
     Indication: Bladder cancer
     Route: 058
     Dates: start: 20250603, end: 20250703

REACTIONS (3)
  - Rash [Not Recovered/Not Resolved]
  - Hyperpyrexia [Unknown]
  - Off label use [Unknown]

NARRATIVE: CASE EVENT DATE: 20250708
